FAERS Safety Report 8732105 (Version 2)
Quarter: 2012Q4

REPORT INFORMATION
  Report Type: 
  Country: US (occurrence: US)
  Receive Date: 20120820
  Receipt Date: 20121024
  Transmission Date: 20130627
  Serious: Yes (Other)
  Sender: FDA-Public Use
  Company Number: US-INCYTE CORPORATION-2012IN001519

PATIENT
  Age: 56 Year
  Sex: Male

DRUGS (5)
  1. JAKAFI [Suspect]
     Indication: MYELOFIBROSIS
     Dosage: 15 mg, bid
     Route: 048
     Dates: start: 20120322, end: 20120705
  2. JAKAFI [Suspect]
     Dosage: 7.5 mg, tid
     Route: 048
     Dates: start: 20120706, end: 20120731
  3. JAKAFI [Suspect]
     Dosage: 7.5 mg, bid
     Route: 048
     Dates: start: 20120801, end: 20120912
  4. ZOMIG [Concomitant]
  5. MELATONIN [Concomitant]

REACTIONS (4)
  - Thrombosis [Unknown]
  - Blood product transfusion dependent [Unknown]
  - Medication error [Unknown]
  - Drug ineffective [Unknown]
